FAERS Safety Report 5877386-4 (Version None)
Quarter: 2008Q3

REPORT INFORMATION
  Report Type: 
  Country: None (occurrence: None)
  Receive Date: 20080908
  Receipt Date: 20080901
  Transmission Date: 20090109
  Serious: Yes (Life-Threatening, Other)
  Sender: FDA-Public Use
  Company Number: WAES 0807USA02395

PATIENT
  Age: 72 Year
  Sex: Female

DRUGS (6)
  1. HYZAAR [Suspect]
     Dosage: 1 DOSE/DAILY
     Route: 048
     Dates: start: 20071218
  2. TAB MEVALOTIN (PRAVASTATIN NA) [Suspect]
     Dosage: 10 MG/DAILY
     Route: 048
  3. NORVASC [Suspect]
     Dosage: 2.5 MG/DAILY
     Route: 048
  4. TAB GLYCORAN (METFORMIN HCL) [Suspect]
     Dosage: 250 MG/TID
     Route: 048
  5. SOLN LAXOBERON (SODIUM PICOSULFATE) [Suspect]
     Route: 048
  6. TAB GLIMICRON (GLICLAZIDE) [Suspect]
     Dosage: 20 MG/DAILY
     Route: 048

REACTIONS (2)
  - ANGINA UNSTABLE [None]
  - REFLUX OESOPHAGITIS [None]
